FAERS Safety Report 23312463 (Version 1)
Quarter: 2023Q4

REPORT INFORMATION
  Report Type: Other
  Country: JP (occurrence: JP)
  Receive Date: 20231219
  Receipt Date: 20231219
  Transmission Date: 20240110
  Serious: Yes (Other)
  Sender: FDA-Public Use
  Company Number: JP-CHUGAI-2023044306AA

PATIENT
  Age: 62 Year

DRUGS (1)
  1. ATEZOLIZUMAB [Suspect]
     Active Substance: ATEZOLIZUMAB
     Indication: Neuroendocrine tumour of the lung
     Dosage: UNK
     Route: 065
     Dates: start: 20211202

REACTIONS (7)
  - White blood cell count decreased [Unknown]
  - Neutrophil count decreased [Unknown]
  - Rash maculo-papular [Unknown]
  - Blood creatinine increased [Unknown]
  - Tubulointerstitial nephritis [Unknown]
  - Alopecia [Unknown]
  - Haemorrhage [Unknown]
